FAERS Safety Report 18937271 (Version 2)
Quarter: 2021Q1

REPORT INFORMATION
  Report Type: Spontaneous
  Country: JP (occurrence: JP)
  Receive Date: 20210224
  Receipt Date: 20210304
  Transmission Date: 20210420
  Serious: Yes (Death, Other)
  Sender: FDA-Public Use
  Company Number: JP-ALLERGAN-2107555US

PATIENT
  Sex: Male

DRUGS (1)
  1. BOTOX [Suspect]
     Active Substance: ONABOTULINUMTOXINA
     Indication: MUSCLE SPASTICITY
     Dosage: UNK UNK, SINGLE
     Dates: start: 20210121, end: 20210121

REACTIONS (1)
  - Pneumonia aspiration [Fatal]
